FAERS Safety Report 8222685-4 (Version None)
Quarter: 2012Q1

REPORT INFORMATION
  Report Type: 
  Country: None (occurrence: None)
  Receive Date: 20120315
  Receipt Date: 20120229
  Transmission Date: 20120608
  Serious: Yes (Hospitalization)
  Sender: FDA-Public Use
  Company Number: DSA_26546_2005

PATIENT
  Age: 53 Year
  Sex: Male

DRUGS (4)
  1. MARZULENE S [Concomitant]
  2. DILTIAZEM HCL [Concomitant]
  3. ENALAPRIL MALEATE [Suspect]
     Indication: HYPERTENSION
     Dosage: 5 MG QD ORAL
     Route: 048
     Dates: start: 20050315, end: 20050503
  4. BAYASPRIN [Concomitant]

REACTIONS (7)
  - HEPATIC FUNCTION ABNORMAL [None]
  - DYSPNOEA [None]
  - NASAL CONGESTION [None]
  - DYSPHONIA [None]
  - ANGIOEDEMA [None]
  - WHITE BLOOD CELL COUNT INCREASED [None]
  - FACE OEDEMA [None]
